FAERS Safety Report 24129959 (Version 1)
Quarter: 2024Q3

REPORT INFORMATION
  Report Type: Report from Study
  Country: US (occurrence: None)
  Receive Date: 20240724
  Receipt Date: 20240724
  Transmission Date: 20241017
  Serious: Yes (Life-Threatening, Hospitalization)
  Sender: ASTRAZENECA
  Company Number: 2022A227011

PATIENT
  Sex: Female

DRUGS (11)
  1. TAGRISSO [Suspect]
     Active Substance: OSIMERTINIB
     Indication: Lung carcinoma cell type unspecified stage 0
     Route: 048
     Dates: start: 20220102
  2. ASPIRIN [Concomitant]
     Active Substance: ASPIRIN
  3. BD PEN MIS [Concomitant]
  4. CELEBREX [Concomitant]
     Active Substance: CELECOXIB
  5. FAMOTIDINE [Concomitant]
     Active Substance: FAMOTIDINE
  6. PANTOPRAZOLE [Concomitant]
     Active Substance: PANTOPRAZOLE
  7. SERTRALINE H [Concomitant]
  8. SPIRIVA HAND [Concomitant]
  9. TOPIRAMATE [Concomitant]
     Active Substance: TOPIRAMATE
  10. TRAZODONE HC [Concomitant]
  11. ZUPLENZ FIL [Concomitant]

REACTIONS (1)
  - Cardiac arrest [Not Recovered/Not Resolved]
